FAERS Safety Report 16384420 (Version 1)
Quarter: 2019Q2

REPORT INFORMATION
  Report Type: Spontaneous
  Country: GB (occurrence: GB)
  Receive Date: 20190603
  Receipt Date: 20190603
  Transmission Date: 20190711
  Serious: Yes (Life-Threatening)
  Sender: FDA-Public Use
  Company Number: GB-MYLANLABS-2019M1051182

PATIENT
  Age: 49 Year
  Sex: Female
  Weight: 56 kg

DRUGS (7)
  1. ONDANSETRON [Suspect]
     Active Substance: ONDANSETRON
     Indication: NAUSEA
     Dosage: ONE DOSE
     Route: 042
  2. OMEPRAZOLE. [Concomitant]
     Active Substance: OMEPRAZOLE
     Dosage: UNK
  3. CITALOPRAM [Suspect]
     Active Substance: CITALOPRAM HYDROBROMIDE
     Indication: DEPRESSION
     Dosage: 30 MILLIGRAM, QD
     Route: 048
     Dates: start: 20180828, end: 20180918
  4. VITAMIN B [Concomitant]
     Active Substance: VITAMIN B
     Dosage: UNK
  5. LANSOPRAZOLE. [Concomitant]
     Active Substance: LANSOPRAZOLE
     Dosage: UNK
  6. THIAMINE. [Concomitant]
     Active Substance: THIAMINE
     Dosage: ON MORNING
  7. TERLIPRESSIN ACETATE [Suspect]
     Active Substance: TERLIPRESSIN
     Indication: GASTROINTESTINAL HAEMORRHAGE
     Dosage: 2 DOSES.
     Route: 042
     Dates: start: 20180915, end: 20180917

REACTIONS (3)
  - Electrocardiogram QT prolonged [Recovered/Resolved]
  - Ventricular fibrillation [Recovered/Resolved]
  - Cardiac arrest [Recovered/Resolved]

NARRATIVE: CASE EVENT DATE: 20180917
